FAERS Safety Report 19815069 (Version 1)
Quarter: 2021Q3

REPORT INFORMATION
  Report Type: Spontaneous
  Country: US (occurrence: US)
  Receive Date: 20210908
  Receipt Date: 20210908
  Transmission Date: 20211014
  Serious: No
  Sender: FDA-Public Use
  Company Number: None

PATIENT
  Sex: Female

DRUGS (1)
  1. HUMIRA [Suspect]
     Active Substance: ADALIMUMAB
     Indication: CROHN^S DISEASE
     Route: 058
     Dates: start: 20190418

REACTIONS (6)
  - Arthralgia [None]
  - Poor quality sleep [None]
  - Fatigue [None]
  - Sinus headache [None]
  - Abdominal pain upper [None]
  - Insurance issue [None]
